FAERS Safety Report 13399883 (Version 1)
Quarter: 2017Q2

REPORT INFORMATION
  Report Type: Spontaneous
  Country: US (occurrence: US)
  Receive Date: 20170404
  Receipt Date: 20170404
  Transmission Date: 20170830
  Serious: No
  Sender: FDA-Public Use
  Company Number: None

PATIENT
  Age: 35 Year
  Sex: Female
  Weight: 83.25 kg

DRUGS (4)
  1. WOMEN DAILY VITAMIN [Concomitant]
  2. CALCIUM VITAMIN [Concomitant]
  3. COPAXONE [Suspect]
     Active Substance: GLATIRAMER ACETATE
     Indication: MULTIPLE SCLEROSIS
     Dosage: ?          QUANTITY:1 INJECTION(S);OTHER FREQUENCY:3 X PER WEEK;?
     Route: 030
     Dates: start: 20170302, end: 20170313
  4. VITAMIN D [Concomitant]
     Active Substance: CHOLECALCIFEROL

REACTIONS (5)
  - Neck pain [None]
  - Pyrexia [None]
  - Vomiting [None]
  - Back pain [None]
  - Pain [None]

NARRATIVE: CASE EVENT DATE: 20170313
